FAERS Safety Report 7241959-7 (Version None)
Quarter: 2011Q1

REPORT INFORMATION
  Report Type: 
  Country: None (occurrence: None)
  Receive Date: 20110114
  Receipt Date: 20110106
  Transmission Date: 20110831
  Serious: Yes (Hospitalization)
  Sender: FDA-Public Use
  Company Number: TCI2011A00113

PATIENT
  Age: 47 Year
  Sex: Female

DRUGS (3)
  1. SAWACILLIN (AMOXICILLIN TRIHYRDATE) [Suspect]
     Indication: HELICOBACTER INFECTION
     Dosage: 1500 MG (1500 MG, 1 D) PER ORAL
     Route: 048
     Dates: start: 20101208, end: 20101214
  2. TAKEPRON OD TABLETS 30 (LANSOPRAZOLE) [Suspect]
     Indication: HELICOBACTER INFECTION
     Dosage: 60 MG (60 MG, 1 D) PER ORAL
     Route: 048
     Dates: start: 20101208, end: 20101214
  3. FLAGYL [Concomitant]

REACTIONS (5)
  - ABDOMINAL PAIN [None]
  - DIARRHOEA [None]
  - BACTERIAL INFECTION [None]
  - COLONOSCOPY ABNORMAL [None]
  - KLEBSIELLA TEST POSITIVE [None]
